FAERS Safety Report 11606136 (Version 2)
Quarter: 2017Q3

REPORT INFORMATION
  Report Type: Report from Study
  Country: US (occurrence: US)
  Receive Date: 20151007
  Receipt Date: 20170726
  Transmission Date: 20171127
  Serious: Yes (Hospitalization, Other)
  Sender: FDA-Public Use
  Company Number: US-ACTELION-A-NJ2015-124883

PATIENT
  Age: 72 Year
  Sex: Male

DRUGS (8)
  1. OPSUMIT [Suspect]
     Active Substance: MACITENTAN
     Indication: PULMONARY ARTERIAL HYPERTENSION
     Dosage: 10 MG, QD
     Route: 048
     Dates: start: 20160622
  2. SILDENAFIL. [Concomitant]
     Active Substance: SILDENAFIL
  3. ATORVASTATIN [Concomitant]
     Active Substance: ATORVASTATIN
  4. RENVELA [Concomitant]
     Active Substance: SEVELAMER CARBONATE
  5. CARVEDILOL. [Concomitant]
     Active Substance: CARVEDILOL
  6. AMLODIPINE [Concomitant]
     Active Substance: AMLODIPINE BESYLATE
  7. LOSARTAN. [Concomitant]
     Active Substance: LOSARTAN
  8. ASPIRIN. [Concomitant]
     Active Substance: ASPIRIN

REACTIONS (6)
  - Dialysis [Recovering/Resolving]
  - Fatigue [Unknown]
  - Fluid overload [Recovering/Resolving]
  - Dizziness [Unknown]
  - Dyspnoea [Recovering/Resolving]
  - Pleural effusion [Recovering/Resolving]
